FAERS Safety Report 4332350-1 (Version None)
Quarter: 2004Q1

REPORT INFORMATION
  Report Type: 
  Country: None (occurrence: None)
  Receive Date: 20040329
  Receipt Date: 20040128
  Transmission Date: 20041129
  Serious: No
  Sender: FDA-Public Use
  Company Number: 04P-163-0248784-00

PATIENT
  Age: 74 Year
  Sex: Female
  Weight: 72.5755 kg

DRUGS (9)
  1. HUMIRA [Suspect]
     Indication: RHEUMATOID ARTHRITIS
     Dosage: 40 MG, 1 IN 2 WK, SUBCUTANEOUS
     Route: 058
     Dates: start: 20031022
  2. AMIGESIC [Concomitant]
  3. PROPACET 100 [Concomitant]
  4. FLUOXETINE HCL [Concomitant]
  5. VENLAFAXINE HCL [Concomitant]
  6. OXYBUTYNIN [Concomitant]
  7. POTASSIUM CHLORIDE [Concomitant]
  8. CALCIUM [Concomitant]
  9. MAGNESIUM [Concomitant]

REACTIONS (1)
  - SOMNOLENCE [None]
